FAERS Safety Report 8514074-X (Version None)
Quarter: 2012Q3

REPORT INFORMATION
  Report Type: 
  Country: None (occurrence: None)
  Receive Date: 20120717
  Receipt Date: 20120702
  Transmission Date: 20120928
  Serious: No
  Sender: FDA-Public Use
  Company Number: US-009507513-1207USA000267

PATIENT

DRUGS (2)
  1. JANUVIA [Suspect]
     Dosage: 200 MG, QD
     Route: 048
  2. JANUVIA [Suspect]
     Dosage: UNK
     Route: 048
     Dates: start: 20120521

REACTIONS (1)
  - OVERDOSE [None]
